FAERS Safety Report 26098872 (Version 1)
Quarter: 2025Q4

REPORT INFORMATION
  Report Type: Spontaneous
  Country: GB (occurrence: IN)
  Receive Date: 20251127
  Receipt Date: 20251127
  Transmission Date: 20260118
  Serious: Yes (Hospitalization, Other)
  Sender: ALKEM
  Company Number: None

PATIENT
  Age: 31 Year
  Sex: Male

DRUGS (3)
  1. MYCOPHENOLATE MOFETIL [Suspect]
     Active Substance: MYCOPHENOLATE MOFETIL
     Indication: Granulomatosis with polyangiitis
     Dosage: UNK
     Route: 065
  2. METHYLPREDNISOLONE [Suspect]
     Active Substance: METHYLPREDNISOLONE
     Indication: Granulomatosis with polyangiitis
     Dosage: 1 GRAM, QD (3-DAY PULSE DOSE)
     Route: 042
  3. METHYLPREDNISOLONE [Suspect]
     Active Substance: METHYLPREDNISOLONE
     Dosage: 7.5 MILLIGRAM, QD
     Route: 065

REACTIONS (6)
  - Melaena [Recovered/Resolved]
  - Critical illness [Unknown]
  - Cytomegalovirus infection reactivation [Recovered/Resolved]
  - Gastric infection [Recovered/Resolved]
  - Immunosuppression [Unknown]
  - Abdominal pain upper [Unknown]
